FAERS Safety Report 4755224-0 (Version None)
Quarter: 2005Q3

REPORT INFORMATION
  Report Type: 
  Country: None (occurrence: None)
  Receive Date: 20050829
  Receipt Date: 20050708
  Transmission Date: 20060218
  Serious: Yes (Other)
  Sender: FDA-Public Use
  Company Number: PT-MERCK-0507PRT00003

PATIENT
  Age: 12 Year
  Sex: Male

DRUGS (7)
  1. SINGULAIR [Suspect]
     Indication: ASTHMA
     Route: 048
     Dates: start: 20040601, end: 20050601
  2. SINGULAIR [Suspect]
     Indication: RHINITIS
     Route: 048
     Dates: start: 20040601, end: 20050601
  3. SYMBICORT [Concomitant]
     Indication: ASTHMA
     Route: 055
     Dates: start: 20040101, end: 20050701
  4. FLUTICASONE PROPIONATE [Concomitant]
     Indication: ASTHMA
     Route: 055
     Dates: start: 20040101, end: 20050701
  5. BRICANYL [Concomitant]
     Route: 055
     Dates: start: 20040101, end: 20050701
  6. VENTILAN (ALBUTEROL SULFATE) [Concomitant]
     Indication: ASTHMA
     Route: 065
     Dates: start: 20050701
  7. ACETAMINOPHEN [Concomitant]
     Indication: PAIN
     Route: 065
     Dates: start: 20050701

REACTIONS (2)
  - HAEMATOMA [None]
  - PETECHIAE [None]
